FAERS Safety Report 9612649 (Version 1)
Quarter: 2013Q4

REPORT INFORMATION
  Report Type: Other
  Country: GB (occurrence: GB)
  Receive Date: 20131010
  Receipt Date: 20131010
  Transmission Date: 20140711
  Serious: Yes (Death, Hospitalization)
  Sender: FDA-Public Use
  Company Number: GB-TARO PHARMACEUTICALS U.S.A., INC-2013SUN04809

PATIENT
  Age: 74 Year
  Sex: Male
  Weight: 60 kg

DRUGS (7)
  1. WARFARIN [Suspect]
     Indication: ATRIAL FIBRILLATION
     Dosage: UNK
     Route: 048
     Dates: start: 20120810
  2. AMIODARONE [Suspect]
     Indication: ATRIAL FIBRILLATION
     Dosage: 200 MG, OD
     Route: 048
     Dates: start: 20120810, end: 20121022
  3. BENDROFLUMETHIAZIDE [Concomitant]
     Indication: HYPERTENSION
     Dosage: 2.5 MG, UNK
     Route: 048
     Dates: start: 20121014
  4. CO-AMOXICLAV [Concomitant]
     Indication: LOWER RESPIRATORY TRACT INFECTION
     Dosage: 625 MG, TID
     Route: 048
     Dates: start: 20121011
  5. PRAVASTATIN [Concomitant]
     Indication: CARDIOVASCULAR DISORDER
     Dosage: 10 MG, OD
     Route: 048
     Dates: start: 20091009
  6. PRAVASTATIN [Concomitant]
     Indication: PROPHYLAXIS
  7. RAMIPRIL [Concomitant]
     Indication: HYPERTENSION
     Dosage: 10 MG, UNK
     Route: 048
     Dates: start: 20120527

REACTIONS (3)
  - Death [Fatal]
  - Dyspnoea [Not Recovered/Not Resolved]
  - Weight decreased [Not Recovered/Not Resolved]
